FAERS Safety Report 16761915 (Version 6)
Quarter: 2020Q4

REPORT INFORMATION
  Report Type: Report from Study
  Country: BR (occurrence: BR)
  Receive Date: 20190830
  Receipt Date: 20201112
  Transmission Date: 20210113
  Serious: Yes (Other)
  Sender: FDA-Public Use
  Company Number: BR-BRISTOL-MYERS SQUIBB COMPANY-BMS-2019-082170

PATIENT
  Sex: Female

DRUGS (3)
  1. ABATACEPT [Suspect]
     Active Substance: ABATACEPT
     Dosage: 1 DOSAGE FORM = 3 VIALS OF 250 G/MONTH
     Route: 042
     Dates: start: 20201015
  2. ABATACEPT [Suspect]
     Active Substance: ABATACEPT
     Indication: RHEUMATOID ARTHRITIS
     Dosage: 1 DOSAGE FORM=THREE 250 MG VIALS, QMO
     Route: 042
     Dates: start: 2019
  3. LAMOTRIGINE. [Concomitant]
     Active Substance: LAMOTRIGINE
     Indication: BIPOLAR DISORDER
     Dosage: UNK
     Route: 065

REACTIONS (5)
  - Intentional product use issue [Unknown]
  - Eye disorder [Recovered/Resolved]
  - Cystitis [Recovered/Resolved]
  - Photosensitivity reaction [Recovered/Resolved]
  - Eye swelling [Recovered/Resolved]
